FAERS Safety Report 10146043 (Version 2)
Quarter: 2014Q2

REPORT INFORMATION
  Report Type: Report from Study
  Country: AT (occurrence: AT)
  Receive Date: 20140501
  Receipt Date: 20140501
  Transmission Date: 20141212
  Serious: Yes (Other)
  Sender: FDA-Public Use
  Company Number: AT-ROCHE-1324434

PATIENT
  Age: 92 Year
  Sex: Female

DRUGS (15)
  1. RANIBIZUMAB [Suspect]
     Indication: AGE-RELATED MACULAR DEGENERATION
     Route: 050
     Dates: start: 201104
  2. RANIBIZUMAB [Suspect]
     Route: 050
  3. RANIBIZUMAB [Suspect]
     Route: 050
  4. RANIBIZUMAB [Suspect]
     Route: 050
  5. RANIBIZUMAB [Suspect]
     Route: 050
  6. RANIBIZUMAB [Suspect]
     Route: 050
  7. RANIBIZUMAB [Suspect]
     Route: 050
  8. RANIBIZUMAB [Suspect]
     Route: 050
  9. RANIBIZUMAB [Suspect]
     Route: 050
     Dates: start: 20130429
  10. SEVIKAR [Concomitant]
     Route: 065
     Dates: start: 2006
  11. PLAVIX [Concomitant]
     Route: 065
     Dates: start: 2009
  12. EUTHYROX [Concomitant]
     Route: 065
     Dates: start: 1995
  13. PANTOLOC [Concomitant]
  14. OCULOTECT [Concomitant]
     Route: 065
     Dates: start: 2007, end: 20130315
  15. HYLO-VISION [Concomitant]
     Route: 065
     Dates: start: 20130515

REACTIONS (2)
  - Blindness [Not Recovered/Not Resolved]
  - Vision blurred [Recovering/Resolving]
